FAERS Safety Report 18666193 (Version 1)
Quarter: 2020Q4

REPORT INFORMATION
  Report Type: Spontaneous
  Country: MX (occurrence: MX)
  Receive Date: 20201226
  Receipt Date: 20201226
  Transmission Date: 20210114
  Serious: Yes (Death, Hospitalization, Other)
  Sender: FDA-Public Use
  Company Number: MX-AMGEN-MEXSP2020210083

PATIENT

DRUGS (2)
  1. NEUPOGEN [Suspect]
     Active Substance: FILGRASTIM
     Indication: PROPHYLAXIS
     Dosage: 6 MILLIGRAM (SINGLE DOSE AT DAY5)
     Route: 065
  2. NEULASTA [Suspect]
     Active Substance: PEGFILGRASTIM
     Indication: PROPHYLAXIS
     Dosage: 10 MILLIGRAM/KILOGRAM, QD
     Route: 065

REACTIONS (5)
  - Death [Fatal]
  - Infection [Unknown]
  - Neutropenia [Unknown]
  - Unevaluable event [Unknown]
  - Febrile neutropenia [Unknown]
